FAERS Safety Report 8863604 (Version 1)
Quarter: 2012Q4

REPORT INFORMATION
  Report Type: 
  Country: US (occurrence: US)
  Receive Date: 20121024
  Receipt Date: 20121024
  Transmission Date: 20130627
  Serious: No
  Sender: FDA-Public Use
  Company Number: US-AMGEN-USASP2011063146

PATIENT
  Age: 70 Year
  Sex: Male

DRUGS (1)
  1. ENBREL [Suspect]
     Indication: PSORIASIS
     Dosage: 50 mg, qwk
     Dates: start: 20110815, end: 20110926

REACTIONS (6)
  - Arthritis [Unknown]
  - Drug ineffective [Unknown]
  - Incision site infection [Unknown]
  - Staphylococcal infection [Unknown]
  - Back pain [Unknown]
  - Psoriasis [Not Recovered/Not Resolved]
